FAERS Safety Report 4417413-4 (Version None)
Quarter: 2004Q3

REPORT INFORMATION
  Report Type: 
  Country: None (occurrence: None)
  Receive Date: 20040803
  Receipt Date: 20040719
  Transmission Date: 20050211
  Serious: No
  Sender: FDA-Public Use
  Company Number: 04P-163-0267916-00

PATIENT
  Age: 43 Year
  Sex: Female
  Weight: 69.8539 kg

DRUGS (5)
  1. HUMIRA [Suspect]
     Indication: RHEUMATOID ARTHRITIS
     Dosage: 40 MG, 1 IN 2 WK, SUBCUTANEOUS
     Route: 058
     Dates: start: 20040101, end: 20040708
  2. HYDROXYCHLOROQUINE PHOSPHATE [Suspect]
     Indication: RHEUMATOID ARTHRITIS
     Dosage: 200 MG, 2 IN 1 D, PER ORAL
     Route: 048
     Dates: start: 20030101, end: 20040708
  3. METHOTREXATE SODIUM [Suspect]
     Indication: RHEUMATOID ARTHRITIS
     Dosage: 15 MG, 1 IN 1 WK, PER ORAL
     Route: 048
     Dates: start: 20040617, end: 20040708
  4. PREDNISONE [Concomitant]
  5. PAROXETINE HYDROCHLORIDE [Concomitant]

REACTIONS (3)
  - DERMATITIS EXFOLIATIVE [None]
  - FACE OEDEMA [None]
  - PERIORBITAL OEDEMA [None]
